FAERS Safety Report 8624568-4 (Version None)
Quarter: 2012Q3

REPORT INFORMATION
  Report Type: 
  Country: None (occurrence: None)
  Receive Date: 20120827
  Receipt Date: 20120824
  Transmission Date: 20120928
  Serious: Yes (Death, Hospitalization)
  Sender: FDA-Public Use
  Company Number: FR-JNJFOC-20120811814

PATIENT
  Sex: Female

DRUGS (5)
  1. PREZISTA [Suspect]
     Indication: HIV INFECTION
     Route: 048
     Dates: start: 20120113, end: 20120802
  2. NORVIR [Suspect]
     Indication: HIV INFECTION
     Route: 048
     Dates: start: 20120113, end: 20120802
  3. INTELENCE [Suspect]
     Indication: HIV INFECTION
     Route: 048
     Dates: start: 20120113, end: 20120802
  4. INTERLEUKINS [Suspect]
     Indication: PROGRESSIVE MULTIFOCAL LEUKOENCEPHALOPATHY
     Route: 058
     Dates: start: 20120621, end: 20120705
  5. TRUVADA [Suspect]
     Indication: HIV INFECTION
     Route: 048
     Dates: start: 20120113, end: 20120802

REACTIONS (3)
  - IMMUNE RECONSTITUTION SYNDROME [None]
  - CONDITION AGGRAVATED [None]
  - PROGRESSIVE MULTIFOCAL LEUKOENCEPHALOPATHY [None]
